FAERS Safety Report 24136873 (Version 2)
Quarter: 2024Q4

REPORT INFORMATION
  Report Type: Spontaneous
  Country: PT (occurrence: PT)
  Receive Date: 20240725
  Receipt Date: 20241015
  Transmission Date: 20250114
  Serious: Yes (Other)
  Sender: SAMSUNG BIOEPIS
  Company Number: PL-AMGEN-POLSP2024062994

PATIENT
  Age: 42 Year
  Sex: Female

DRUGS (1)
  1. ADALIMUMAB [Suspect]
     Active Substance: ADALIMUMAB
     Indication: Spondylitis
     Dosage: UNK
     Route: 065

REACTIONS (3)
  - Systemic lupus erythematosus [Unknown]
  - Polyarthritis [Unknown]
  - Off label use [Unknown]
